FAERS Safety Report 8387723-7 (Version None)
Quarter: 2012Q2

REPORT INFORMATION
  Report Type: 
  Country: None (occurrence: None)
  Receive Date: 20120525
  Receipt Date: 20120515
  Transmission Date: 20120825
  Serious: Yes (Hospitalization)
  Sender: FDA-Public Use
  Company Number: CO-ELI_LILLY_AND_COMPANY-CO201205005713

PATIENT
  Age: 75 Year
  Sex: Female

DRUGS (3)
  1. ACETAMINOPHEN AND TRAMADOL HCL [Concomitant]
  2. FORTEO [Suspect]
     Indication: OSTEOPOROSIS
     Dosage: 20 UG, QD
     Route: 058
     Dates: start: 20111101
  3. IBUPROFEN (ADVIL) [Concomitant]

REACTIONS (3)
  - BLADDER PAIN [None]
  - BACK PAIN [None]
  - ARTHRALGIA [None]
